FAERS Safety Report 15312381 (Version 1)
Quarter: 2018Q3

REPORT INFORMATION
  Report Type: Spontaneous
  Country: US (occurrence: US)
  Receive Date: 20180814
  Receipt Date: 20180814
  Transmission Date: 20181010
  Serious: No
  Sender: FDA-Public Use
  Company Number: None

PATIENT
  Age: 8 Year
  Sex: Female
  Weight: 31.85 kg

DRUGS (1)
  1. SUPPRELIN LA [Suspect]
     Active Substance: HISTRELIN ACETATE
     Indication: PRECOCIOUS PUBERTY
     Dosage: 50MG ONCE A YEAR IMPLANT?MAY12,2017 IMPLANTED?MAY 31, 2018 REMOVED
     Dates: start: 20170512, end: 20180531

REACTIONS (1)
  - Blood pressure increased [None]
